FAERS Safety Report 5607510-X (Version None)
Quarter: 2008Q1

REPORT INFORMATION
  Report Type: 
  Country: None (occurrence: None)
  Receive Date: 20080125
  Receipt Date: 20080114
  Transmission Date: 20080703
  Serious: Yes (Death, Life-Threatening, Hospitalization)
  Sender: FDA-Public Use
  Company Number: CHNY2008DE00571

PATIENT
  Age: 54 Year
  Sex: Male

DRUGS (9)
  1. FENISTIL-RETARD [Suspect]
     Indication: RHINITIS ALLERGIC
     Dosage: ORAL
     Route: 048
     Dates: start: 20040817, end: 20040901
  2. CLONIDINE (CLONIDINE HYDROCHLORIDE) [Suspect]
     Dosage: 150 MG, TID
     Dates: start: 20040813, end: 20040901
  3. PANTOPRAZOLE SODIUM [Suspect]
     Dosage: 40 MG, QD, ORAL
     Route: 048
     Dates: start: 20040813, end: 20040901
  4. DECORTIN  (PREDNISONE) [Suspect]
     Indication: RASH
     Dosage: 60 MG, QD, ORAL
     Route: 048
     Dates: start: 20040904, end: 20040901
  5. BRONCHO  (SALBUTAMOL) [Suspect]
     Dosage: 2 DF, BID
     Dates: start: 20040813, end: 20040901
  6. AQUAPHOR  (XIPAMIDE) [Suspect]
     Indication: HYPERTENSION
     Dosage: 40 MG, BID, ORAL
     Route: 048
     Dates: start: 20040813, end: 20040901
  7. OSYROL  (SPIRONOLACTONE) [Suspect]
     Indication: POLYURIA
     Dosage: 100 MG, BID, ORAL
     Route: 048
     Dates: start: 20040813, end: 20040901
  8. VIAN (FLUTICASONE PROPIONATE, SALMETEROL XINAFOATE) [Suspect]
     Indication: CHRONIC OBSTRUCTIVE PULMONARY DISEASE
     Dosage: 1 DF, BID
     Dates: start: 20040816, end: 20040901
  9. ALLOPURINOL [Suspect]
     Indication: HYPERURICAEMIA
     Dosage: 100 MG, QD, ORAL
     Route: 048
     Dates: start: 20040905, end: 20040901

REACTIONS (2)
  - RHINITIS ALLERGIC [None]
  - TOXIC EPIDERMAL NECROLYSIS [None]
